FAERS Safety Report 5935619-X (Version None)
Quarter: 2008Q4

REPORT INFORMATION
  Report Type: 
  Country: None (occurrence: None)
  Receive Date: 20081030
  Receipt Date: 20081028
  Transmission Date: 20090506
  Serious: Yes (Other)
  Sender: FDA-Public Use
  Company Number: B0544159A

PATIENT
  Sex: Male

DRUGS (3)
  1. CLENIL [Suspect]
     Indication: DRUG USE FOR UNKNOWN INDICATION
     Route: 055
     Dates: start: 20080101
  2. SALBUTAMOL [Concomitant]
  3. SALMETEROL [Concomitant]

REACTIONS (1)
  - PALPITATIONS [None]
